FAERS Safety Report 6147531-4 (Version None)
Quarter: 2009Q2

REPORT INFORMATION
  Report Type: 
  Country: None (occurrence: None)
  Receive Date: 20090408
  Receipt Date: 20090407
  Transmission Date: 20091009
  Serious: Yes (Other)
  Sender: FDA-Public Use
  Company Number: GB-SP-2009-00588

PATIENT
  Age: 58 Year
  Sex: Male

DRUGS (1)
  1. BCG  THERAPEUTICS [Suspect]
     Indication: BLADDER CANCER
     Route: 043
     Dates: start: 20050121, end: 20060413

REACTIONS (1)
  - TUBERCULOSIS [None]
